FAERS Safety Report 20868578 (Version 1)
Quarter: 2022Q2

REPORT INFORMATION
  Report Type: Spontaneous
  Country: US (occurrence: None)
  Receive Date: 20220524
  Receipt Date: 20220524
  Transmission Date: 20220721
  Serious: No
  Sender: FDA-Public Use
  Company Number: None

PATIENT
  Age: 10 Year
  Sex: Female

DRUGS (1)
  1. LUPRON [Suspect]
     Active Substance: LEUPROLIDE ACETATE
     Indication: Precocious puberty
     Dosage: OTHER FREQUENCY : ONCE EVERY 3 MONTH;?
     Route: 030
     Dates: start: 20220225

REACTIONS (3)
  - Injection site pain [None]
  - Hot flush [None]
  - Gait disturbance [None]

NARRATIVE: CASE EVENT DATE: 20220523
